FAERS Safety Report 9192597 (Version 1)
Quarter: 2013Q1

REPORT INFORMATION
  Report Type: Spontaneous
  Country: US (occurrence: None)
  Receive Date: 20120703
  Receipt Date: 20120703
  Transmission Date: 20140127
  Serious: No
  Sender: FDA-Public Use
  Company Number: PHEH2012US005335

PATIENT
  Age: 50 Year
  Sex: Female

DRUGS (1)
  1. GILENYA (FTY)CAPSULE [Suspect]
     Indication: MULTIPLE SCLEROSIS
     Route: 048
     Dates: start: 20101210

REACTIONS (6)
  - Balance disorder [None]
  - Motor dysfunction [None]
  - Dysstasia [None]
  - Abasia [None]
  - Ear infection [None]
  - Fall [None]
